FAERS Safety Report 21931965 (Version 1)
Quarter: 2023Q1

REPORT INFORMATION
  Report Type: Spontaneous
  Country: FI (occurrence: FI)
  Receive Date: 20230131
  Receipt Date: 20230131
  Transmission Date: 20230417
  Serious: Yes (Hospitalization)
  Sender: FDA-Public Use
  Company Number: None

PATIENT

DRUGS (1)
  1. BENZOYL PEROXIDE [Suspect]
     Active Substance: BENZOYL PEROXIDE
     Indication: Acne
     Dosage: 1 DOSAGE FORM
     Route: 061
     Dates: start: 20211223, end: 20220104

REACTIONS (8)
  - Urticaria [Recovered/Resolved with Sequelae]
  - Skin sensitisation [Recovered/Resolved with Sequelae]
  - Localised oedema [Recovered/Resolved with Sequelae]
  - Allergy to chemicals [Recovered/Resolved with Sequelae]
  - Face oedema [Recovered/Resolved with Sequelae]
  - Eye oedema [Recovered/Resolved with Sequelae]
  - Dermatitis allergic [Recovered/Resolved with Sequelae]
  - Hypersensitivity [Recovered/Resolved with Sequelae]

NARRATIVE: CASE EVENT DATE: 20220104
